FAERS Safety Report 8348427 (Version 4)
Quarter: 2012Q4

REPORT INFORMATION
  Report Type: 
  Country: US (occurrence: US)
  Receive Date: 20120123
  Receipt Date: 20121015
  Transmission Date: 20130627
  Serious: Yes (Other)
  Sender: FDA-Public Use
  Company Number: US-PFIZER INC-2012013497

PATIENT
  Age: 60 Year
  Sex: Female
  Weight: 74.8 kg

DRUGS (5)
  1. LYRICA [Suspect]
     Indication: PAIN
     Dosage: 300 mg, 2x/day
  2. CELEBREX [Suspect]
     Indication: PAIN
     Dosage: 200 mg, daily
  3. LOPID [Suspect]
     Indication: BLOOD CHOLESTEROL ABNORMAL
     Dosage: 600 mg, 2x/day
  4. CYMBALTA [Suspect]
     Indication: DEPRESSION
     Dosage: 5 mg, daily
  5. LISINOPRIL [Concomitant]
     Indication: BLOOD PRESSURE ABNORMAL
     Dosage: 10 mg, daily

REACTIONS (5)
  - Nervous system disorder [Not Recovered/Not Resolved]
  - Memory impairment [Not Recovered/Not Resolved]
  - Blood cholesterol increased [Unknown]
  - Dementia [Not Recovered/Not Resolved]
  - Sleep disorder [Not Recovered/Not Resolved]
